FAERS Safety Report 12425163 (Version 1)
Quarter: 2016Q2

REPORT INFORMATION
  Report Type: Spontaneous
  Country: FR (occurrence: FR)
  Receive Date: 20160601
  Receipt Date: 20160601
  Transmission Date: 20160815
  Serious: Yes (Hospitalization, Other)
  Sender: FDA-Public Use
  Company Number: FR-GILEAD-2016-0215163

PATIENT
  Age: 68 Year
  Sex: Male

DRUGS (12)
  1. PRIMPERAN [Concomitant]
     Active Substance: METOCLOPRAMIDE HYDROCHLORIDE
  2. ACUPAN [Concomitant]
     Active Substance: NEFOPAM HYDROCHLORIDE
  3. ATORVASTATINE                      /01326101/ [Concomitant]
     Active Substance: ATORVASTATIN
  4. PANTOPRAZOLE [Concomitant]
     Active Substance: PANTOPRAZOLE SODIUM
  5. SPIRIVA [Concomitant]
     Active Substance: TIOTROPIUM BROMIDE MONOHYDRATE
  6. IMOVANE [Concomitant]
     Active Substance: ZOPICLONE
  7. CONTRAMAL [Concomitant]
     Active Substance: TRAMADOL HYDROCHLORIDE
  8. LOPRESSOR [Concomitant]
     Active Substance: METOPROLOL TARTRATE
  9. MABTHERA [Concomitant]
     Active Substance: RITUXIMAB
     Indication: ACUTE PROMYELOCYTIC LEUKAEMIA
     Dosage: UNK
     Route: 042
     Dates: start: 20141106, end: 201505
  10. RAMIPRIL. [Concomitant]
     Active Substance: RAMIPRIL
  11. DOLIPRANE [Concomitant]
     Active Substance: ACETAMINOPHEN
  12. ZYDELIG [Suspect]
     Active Substance: IDELALISIB
     Indication: ACUTE PROMYELOCYTIC LEUKAEMIA
     Dosage: UNK
     Route: 048
     Dates: start: 20141101, end: 20151008

REACTIONS (2)
  - Cholecystitis infective [Recovered/Resolved]
  - Rash maculo-papular [Not Recovered/Not Resolved]

NARRATIVE: CASE EVENT DATE: 20150521
